FAERS Safety Report 6138320-5 (Version None)
Quarter: 2009Q1

REPORT INFORMATION
  Report Type: 
  Country: None (occurrence: None)
  Receive Date: 20090327
  Receipt Date: 20090308
  Transmission Date: 20090719
  Serious: Yes (Other)
  Sender: FDA-Public Use
  Company Number: 2007S1003757

PATIENT
  Age: 80 Year
  Sex: Female
  Weight: 59.8748 kg

DRUGS (7)
  1. PHOSPHOSODA FLAVOR NOT SPECIFIED [Suspect]
     Indication: COLONOSCOPY
     Dosage: 90 ML;TOTAL;PO
     Route: 048
     Dates: start: 20040826, end: 20040826
  2. LEVOXYL [Concomitant]
  3. PRAVACHOL [Concomitant]
  4. COZAAR [Concomitant]
  5. TYLENOL (CAPLET) [Concomitant]
  6. ASPIRIN [Concomitant]
  7. CALCIUM [Concomitant]

REACTIONS (7)
  - ANXIETY [None]
  - DIARRHOEA [None]
  - INJURY [None]
  - NEPHROCALCINOSIS [None]
  - RENAL FAILURE ACUTE [None]
  - RENAL FAILURE CHRONIC [None]
  - RENAL TUBULAR NECROSIS [None]
